FAERS Safety Report 12454360 (Version 2)
Quarter: 2021Q1

REPORT INFORMATION
  Report Type: Spontaneous
  Country: US (occurrence: US)
  Receive Date: 20160610
  Receipt Date: 20210309
  Transmission Date: 20210419
  Serious: No
  Sender: FDA-Public Use
  Company Number: US-BIOGEN-2016BI00233302

PATIENT
  Age: 53 Year
  Sex: Female

DRUGS (6)
  1. PLEGRIDY [Suspect]
     Active Substance: PEGINTERFERON BETA-1A
     Indication: MULTIPLE SCLEROSIS
     Route: 030
  2. PLEGRIDY [Suspect]
     Active Substance: PEGINTERFERON BETA-1A
     Route: 058
  3. PLEGRIDY [Suspect]
     Active Substance: PEGINTERFERON BETA-1A
     Route: 058
     Dates: start: 20160107
  4. PLEGRIDY [Suspect]
     Active Substance: PEGINTERFERON BETA-1A
     Indication: MULTIPLE SCLEROSIS
     Route: 065
     Dates: start: 20170425
  5. PLEGRIDY [Suspect]
     Active Substance: PEGINTERFERON BETA-1A
     Route: 058
     Dates: start: 201601
  6. PLEGRIDY [Suspect]
     Active Substance: PEGINTERFERON BETA-1A
     Route: 058
     Dates: start: 20170323

REACTIONS (30)
  - Sjogren^s syndrome [Unknown]
  - Rash papular [Not Recovered/Not Resolved]
  - Cutaneous symptom [Not Recovered/Not Resolved]
  - Headache [Recovered/Resolved]
  - Oedema peripheral [Unknown]
  - Pain in extremity [Unknown]
  - Burning sensation [Unknown]
  - Multiple sclerosis relapse [Recovered/Resolved]
  - Rash erythematous [Unknown]
  - Incorrect route of product administration [Unknown]
  - Inflammation [Recovered/Resolved]
  - Injection site bruising [Not Recovered/Not Resolved]
  - Cellulitis [Unknown]
  - Secretion discharge [Unknown]
  - Balance disorder [Not Recovered/Not Resolved]
  - Photosensitivity reaction [Unknown]
  - Incontinence [Recovered/Resolved]
  - Tremor [Recovered/Resolved]
  - Pruritus [Not Recovered/Not Resolved]
  - Feeling of body temperature change [Unknown]
  - Loss of control of legs [Recovered/Resolved]
  - Dizziness [Not Recovered/Not Resolved]
  - Hypoaesthesia [Recovered/Resolved]
  - Fatigue [Not Recovered/Not Resolved]
  - Hypoacusis [Unknown]
  - Abdominal pain [Recovered/Resolved]
  - Fall [Recovered/Resolved]
  - Depression [Recovered/Resolved]
  - Erythromelalgia [Unknown]
  - Pyrexia [Recovered/Resolved]

NARRATIVE: CASE EVENT DATE: 201606
